FAERS Safety Report 21208778 (Version 16)
Quarter: 2023Q2

REPORT INFORMATION
  Report Type: Report from Study
  Country: KR (occurrence: None)
  Receive Date: 20220812
  Receipt Date: 20230627
  Transmission Date: 20230722
  Serious: Yes (Hospitalization)
  Sender: FDA-Public Use
  Company Number: KR-Eisai Medical Research-EC-2022-121046

PATIENT
  Age: 53 Year
  Sex: Female
  Weight: 47.9 kg

DRUGS (10)
  1. LENVATINIB [Suspect]
     Active Substance: LENVATINIB
     Indication: Hepatobiliary cancer
     Route: 048
     Dates: start: 20220722, end: 20220804
  2. PEMBROLIZUMAB [Suspect]
     Active Substance: PEMBROLIZUMAB
     Indication: Hepatobiliary cancer
     Route: 041
     Dates: start: 20220722, end: 20220722
  3. BELZUTIFAN [Suspect]
     Active Substance: BELZUTIFAN
     Indication: Hepatobiliary cancer
     Route: 048
     Dates: start: 20220722, end: 20220804
  4. MAGNESIUM OXIDE [Concomitant]
     Active Substance: MAGNESIUM OXIDE
     Dates: start: 20211112
  5. LACTULOSE [Concomitant]
     Active Substance: LACTULOSE
     Dates: start: 20211112
  6. PREGABALIN [Concomitant]
     Active Substance: PREGABALIN
     Dates: start: 20220720, end: 20220802
  7. TEGOPRAZAN [Concomitant]
     Active Substance: TEGOPRAZAN
     Dates: start: 20220720, end: 20220802
  8. NALOXONE HYDROCHLORIDE\OXYCODONE HYDROCHLORIDE [Concomitant]
     Active Substance: NALOXONE HYDROCHLORIDE\OXYCODONE HYDROCHLORIDE
     Dates: start: 20220720
  9. HERBALS [Concomitant]
     Active Substance: HERBALS
     Dates: start: 20220722, end: 20220819
  10. OXYCODONE HYDROCHLORIDE [Concomitant]
     Active Substance: OXYCODONE HYDROCHLORIDE
     Dates: start: 20220720

REACTIONS (1)
  - Platelet count decreased [Recovered/Resolved]

NARRATIVE: CASE EVENT DATE: 20220805
